FAERS Safety Report 24078994 (Version 2)
Quarter: 2024Q3

REPORT INFORMATION
  Report Type: Spontaneous
  Country: RO (occurrence: RO)
  Receive Date: 20240711
  Receipt Date: 20240916
  Transmission Date: 20241016
  Serious: Yes (Death, Life-Threatening, Hospitalization, Other)
  Sender: ARGENX BVBA
  Company Number: RO-Medison-000236

PATIENT

DRUGS (6)
  1. VYVGART [Suspect]
     Active Substance: EFGARTIGIMOD ALFA-FCAB
     Indication: Myasthenia gravis
     Dosage: 10 MG/KG
     Route: 065
     Dates: start: 20240326, end: 20240702
  2. TIANEPTINE SODIUM [Concomitant]
     Active Substance: TIANEPTINE SODIUM
     Indication: Affective disorder
     Dosage: UNK
     Route: 065
  3. SPITOMIN [Concomitant]
     Indication: Affective disorder
     Dosage: UNK
     Route: 065
  4. MEDROL [Concomitant]
     Active Substance: METHYLPREDNISOLONE
     Indication: Myasthenia gravis
     Dosage: 16 MG, 1+1/2 TB
     Route: 065
  5. MESTINON [Concomitant]
     Active Substance: PYRIDOSTIGMINE BROMIDE
     Indication: Myasthenia gravis
     Dosage: 4 TAB, DAILY
     Route: 065
  6. SYNJARDY [Concomitant]
     Active Substance: EMPAGLIFLOZIN\METFORMIN HYDROCHLORIDE
     Indication: Steroid diabetes
     Dosage: UNK
     Route: 065

REACTIONS (2)
  - Myasthenia gravis crisis [Fatal]
  - Respiratory failure [Fatal]

NARRATIVE: CASE EVENT DATE: 20240703
